FAERS Safety Report 19764643 (Version 1)
Quarter: 2021Q3

REPORT INFORMATION
  Report Type: Spontaneous
  Country: US (occurrence: US)
  Receive Date: 20210830
  Receipt Date: 20210830
  Transmission Date: 20211014
  Serious: No
  Sender: FDA-Public Use
  Company Number: US-ASTRAZENECA-2021A678999

PATIENT
  Age: 782 Month
  Sex: Female
  Weight: 94.8 kg

DRUGS (2)
  1. FASENRA [Suspect]
     Active Substance: BENRALIZUMAB
     Indication: DYSPNOEA
     Route: 058
     Dates: start: 20210724
  2. FASENRA [Suspect]
     Active Substance: BENRALIZUMAB
     Indication: COUGH
     Route: 058
     Dates: start: 20210724

REACTIONS (1)
  - Skin discolouration [Unknown]

NARRATIVE: CASE EVENT DATE: 202108
